FAERS Safety Report 20695334 (Version 1)
Quarter: 2022Q2

REPORT INFORMATION
  Report Type: Spontaneous
  Country: BR (occurrence: BR)
  Receive Date: 20220411
  Receipt Date: 20220411
  Transmission Date: 20220721
  Serious: Yes (Other)
  Sender: FDA-Public Use
  Company Number: BR-LUPIN PHARMACEUTICALS INC.-2022-05144

PATIENT
  Sex: Male

DRUGS (15)
  1. RIFAMPIN [Suspect]
     Active Substance: RIFAMPIN
     Indication: Tuberculosis
     Dosage: UNK (RHZ REGIMEN)
     Route: 065
     Dates: start: 200503
  2. RIFAMPIN [Suspect]
     Active Substance: RIFAMPIN
     Dosage: UNK (ADDITION OF ISONIAZID AND RIFAMPICIN (RHSEETZ REGIMEN)
     Route: 065
     Dates: start: 200706
  3. ETHAMBUTOL [Suspect]
     Active Substance: ETHAMBUTOL HYDROCHLORIDE
     Indication: Tuberculosis
     Dosage: UNK (SEETZ REGIMEN; THE PATIENT ABANDONED THIS TREATMENT FOUR MONTHS LATER)
     Route: 065
  4. ETHAMBUTOL [Suspect]
     Active Substance: ETHAMBUTOL HYDROCHLORIDE
     Dosage: UNK (SEETZ REGIMEN REINTRODUCED)
     Route: 065
     Dates: start: 200609
  5. ETHAMBUTOL [Suspect]
     Active Substance: ETHAMBUTOL HYDROCHLORIDE
     Dosage: UNK (NEW THERAPEUTIC REGIMEN WAS INTRODUCED)
     Route: 065
     Dates: start: 201807
  6. ETHIONAMIDE [Suspect]
     Active Substance: ETHIONAMIDE
     Indication: Tuberculosis
     Dosage: UNK SEETZ REGIMEN; THE PATIENT ABANDONED THIS TREATMENT FOUR MONTHS LATER
     Route: 065
  7. ETHIONAMIDE [Suspect]
     Active Substance: ETHIONAMIDE
     Dosage: UNK (SEETZ REGIMEN WAS REINTODUCED)
     Route: 065
     Dates: start: 200609
  8. ISONIAZID [Suspect]
     Active Substance: ISONIAZID
     Indication: Tuberculosis
     Dosage: UNK (RHZ REGIMEN)
     Route: 065
     Dates: start: 200503
  9. ISONIAZID [Suspect]
     Active Substance: ISONIAZID
     Dosage: UNK (RHSEETZ REGIMEN)
     Route: 065
     Dates: start: 200706
  10. PYRAZINAMIDE [Suspect]
     Active Substance: PYRAZINAMIDE
     Indication: Tuberculosis
     Dosage: UNK (RHZ REGIMEN)
     Route: 065
     Dates: start: 200503
  11. PYRAZINAMIDE [Suspect]
     Active Substance: PYRAZINAMIDE
     Dosage: UNK (SEETZ REGIMEN; THE PATIENT ABANDONED THIS TREATMENT FOUR MONTHS LATER)
     Route: 065
  12. PYRAZINAMIDE [Suspect]
     Active Substance: PYRAZINAMIDE
     Dosage: UNK (SEETZ REGIMEN)
     Route: 065
     Dates: start: 200609
  13. PYRAZINAMIDE [Suspect]
     Active Substance: PYRAZINAMIDE
     Dosage: UNK ((AEOTZ REGIMEN) NEW REGIME
     Route: 065
  14. STREPTOMYCIN [Suspect]
     Active Substance: STREPTOMYCIN SULFATE
     Indication: Tuberculosis
     Dosage: UNK (SEETZ REGIMEN; THE PATIENT ABANDONED THIS TREATMENT FOUR MONTHS LATER)
     Route: 065
  15. STREPTOMYCIN [Suspect]
     Active Substance: STREPTOMYCIN SULFATE
     Dosage: UNK (SEETZ REGIMEN)
     Route: 065
     Dates: start: 200609

REACTIONS (2)
  - Treatment failure [Unknown]
  - Drug ineffective [Unknown]

NARRATIVE: CASE EVENT DATE: 20050101
